FAERS Safety Report 21280694 (Version 3)
Quarter: 2022Q4

REPORT INFORMATION
  Report Type: Spontaneous
  Country: US (occurrence: US)
  Receive Date: 20220901
  Receipt Date: 20221219
  Transmission Date: 20230112
  Serious: No
  Sender: FDA-Public Use
  Company Number: US-NOVARTISTESTPH-NVSC2022US196719

PATIENT
  Sex: Female

DRUGS (2)
  1. ZOMETA [Suspect]
     Active Substance: ZOLEDRONIC ACID
     Indication: Product used for unknown indication
     Dosage: UNK, QMO (ONCE A MONTH FOR 3 YEARS)
     Route: 065
  2. IBRANCE [Suspect]
     Active Substance: PALBOCICLIB
     Indication: Breast cancer
     Dosage: 125 MG
     Route: 065

REACTIONS (6)
  - Alopecia [Unknown]
  - Jaw disorder [Unknown]
  - Tooth loss [Unknown]
  - Synostosis [Unknown]
  - Fatigue [Unknown]
  - Impaired healing [Unknown]
